FAERS Safety Report 9326034 (Version 1)
Quarter: 2013Q2

REPORT INFORMATION
  Report Type: Spontaneous
  Country: JP (occurrence: JP)
  Receive Date: 20130604
  Receipt Date: 20130604
  Transmission Date: 20140414
  Serious: Yes (Hospitalization)
  Sender: FDA-Public Use
  Company Number: JP-ROCHE-1230259

PATIENT
  Age: 61 Year
  Sex: Female

DRUGS (2)
  1. BEVACIZUMAB [Suspect]
     Indication: LUNG NEOPLASM MALIGNANT
     Dosage: DAY 1
     Route: 065
     Dates: start: 201010
  2. GEMCITABINE [Suspect]
     Indication: LUNG NEOPLASM MALIGNANT
     Dosage: DAY 1, 8
     Route: 065
     Dates: start: 201010

REACTIONS (1)
  - Thrombotic thrombocytopenic purpura [Recovered/Resolved]
